FAERS Safety Report 9448263 (Version 3)
Quarter: 2013Q3

REPORT INFORMATION
  Report Type: Spontaneous
  Country: JP (occurrence: JP)
  Receive Date: 20130808
  Receipt Date: 20130919
  Transmission Date: 20140515
  Serious: Yes (Other)
  Sender: FDA-Public Use
  Company Number: JP-PFIZER INC-2013226932

PATIENT
  Age: 75 Year
  Sex: Female

DRUGS (3)
  1. ALDACTONE A [Suspect]
     Indication: CARDIAC FAILURE
     Dosage: 25 MG, DAILY
     Route: 048
  2. ALDACTONE A [Suspect]
     Indication: BLOOD PRESSURE ABNORMAL
  3. LASIX [Suspect]
     Dosage: 12.5 MG, 1X/DAY
     Route: 048

REACTIONS (3)
  - Hypotension [Unknown]
  - Blood sodium decreased [Unknown]
  - Blood potassium increased [Recovered/Resolved]
